FAERS Safety Report 16411315 (Version 1)
Quarter: 2019Q2

REPORT INFORMATION
  Report Type: Spontaneous
  Country: FR (occurrence: FR)
  Receive Date: 20190610
  Receipt Date: 20190610
  Transmission Date: 20190711
  Serious: Yes (Hospitalization)
  Sender: FDA-Public Use
  Company Number: FR-PFIZER INC-2019239872

PATIENT
  Age: 78 Year
  Sex: Female
  Weight: 54 kg

DRUGS (15)
  1. PRIMALAN [Concomitant]
     Active Substance: MEQUITAZINE
     Dosage: UNK
  2. CALCIDOSE VITAMINE D [Concomitant]
     Active Substance: CALCIUM\CHOLECALCIFEROL
     Dosage: UNK
  3. PARACETAMOL [Concomitant]
     Active Substance: ACETAMINOPHEN
     Dosage: UNK
  4. VINCRISTINE HOSPIRA [Suspect]
     Active Substance: VINCRISTINE
     Indication: ACUTE LYMPHOCYTIC LEUKAEMIA
     Dosage: 1 MG AT D1, D8, D15 AND D22
     Route: 042
     Dates: start: 20190401, end: 20190401
  5. SERESTA [Concomitant]
     Active Substance: OXAZEPAM
     Dosage: UNK
  6. PROLIA [Concomitant]
     Active Substance: DENOSUMAB
     Dosage: UNK
  7. HAVLANE [Concomitant]
     Active Substance: LOPRAZOLAM
     Dosage: UNK
  8. GLIVEC [Suspect]
     Active Substance: IMATINIB MESYLATE
     Indication: ACUTE LYMPHOCYTIC LEUKAEMIA
     Dosage: 2 DF, 1X/DAY
     Route: 048
     Dates: start: 20190401
  9. CORTANCYL [Concomitant]
     Active Substance: PREDNISONE
     Dosage: UNK
  10. ATROVENT [Concomitant]
     Active Substance: IPRATROPIUM BROMIDE
     Dosage: UNK
  11. VOLTARENE [Concomitant]
     Dosage: UNK
  12. MIANSERINE HCL [Concomitant]
     Active Substance: MIANSERIN HYDROCHLORIDE
     Dosage: UNK
  13. LYRICA [Concomitant]
     Active Substance: PREGABALIN
     Dosage: UNK
  14. TRAMADOL HCL [Concomitant]
     Active Substance: TRAMADOL HYDROCHLORIDE
     Dosage: UNK
  15. MACROGOL [Concomitant]
     Active Substance: POLYETHYLENE GLYCOLS
     Dosage: UNK

REACTIONS (2)
  - Tumour lysis syndrome [Recovered/Resolved]
  - Aplasia [Recovered/Resolved]

NARRATIVE: CASE EVENT DATE: 20190402
